FAERS Safety Report 19015026 (Version 10)
Quarter: 2025Q2

REPORT INFORMATION
  Report Type: Report from Study
  Country: US (occurrence: US)
  Receive Date: 20210316
  Receipt Date: 20250602
  Transmission Date: 20250717
  Serious: Yes (Hospitalization, Other)
  Sender: TAKEDA
  Company Number: US-TAKEDA-2021TUS014468

PATIENT
  Age: 61 Year
  Sex: Female

DRUGS (3)
  1. HUMAN IMMUNOGLOBULIN G\HYALURONIDASE RECOMBINANT HUMAN [Suspect]
     Active Substance: HUMAN IMMUNOGLOBULIN G\HYALURONIDASE (HUMAN RECOMBINANT)
     Indication: Immunodeficiency common variable
     Dosage: 40 GRAM, Q4WEEKS
  2. HUMAN IMMUNOGLOBULIN G\HYALURONIDASE RECOMBINANT HUMAN [Suspect]
     Active Substance: HUMAN IMMUNOGLOBULIN G\HYALURONIDASE (HUMAN RECOMBINANT)
     Indication: Primary immunodeficiency syndrome
  3. HUMAN IMMUNOGLOBULIN G\HYALURONIDASE RECOMBINANT HUMAN [Suspect]
     Active Substance: HUMAN IMMUNOGLOBULIN G\HYALURONIDASE (HUMAN RECOMBINANT)

REACTIONS (20)
  - Sepsis [Unknown]
  - COVID-19 pneumonia [Recovered/Resolved]
  - Burning sensation [Unknown]
  - Thyroiditis [Unknown]
  - Psoriasis [Unknown]
  - Petechiae [Unknown]
  - Sinusitis [Unknown]
  - Animal bite [Unknown]
  - Gastrointestinal disorder [Unknown]
  - Dental caries [Unknown]
  - Lung disorder [Unknown]
  - Scar [Unknown]
  - Bronchitis [Unknown]
  - Thyroid mass [Unknown]
  - Pulmonary mass [Unknown]
  - Spleen disorder [Unknown]
  - Brain fog [Not Recovered/Not Resolved]
  - Chronic gastritis [Unknown]
  - Pernicious anaemia [Unknown]
  - Liver disorder [Unknown]

NARRATIVE: CASE EVENT DATE: 20231104
